FAERS Safety Report 15020049 (Version 1)
Quarter: 2018Q2

REPORT INFORMATION
  Report Type: Other
  Country: DK (occurrence: DK)
  Receive Date: 20180618
  Receipt Date: 20180618
  Transmission Date: 20180711
  Serious: Yes (Disabling)
  Sender: FDA-Public Use
  Company Number: DK-STRIDES ARCOLAB LIMITED-2018SP004986

PATIENT

DRUGS (2)
  1. EUTHYROX [Concomitant]
     Active Substance: LEVOTHYROXINE SODIUM
     Indication: HYPOTHYROIDISM
     Dosage: STYRKE: 25 MIKROGRAM. (STRENGTH 25MICROGRAMS)
     Route: 048
     Dates: start: 20130612
  2. VANCOMYCIN [Suspect]
     Active Substance: VANCOMYCIN
     Indication: CLOSTRIDIUM DIFFICILE COLITIS
     Dosage: STYRKE OG DOSIS IKKE OPLYST (STRENGTH AND DOSAGE NOT DISCLOSED)
     Route: 048
     Dates: start: 20170228

REACTIONS (3)
  - Retinal detachment [Recovered/Resolved]
  - Vitrectomy [Unknown]
  - Visual impairment [Not Recovered/Not Resolved]

NARRATIVE: CASE EVENT DATE: 20170404
